FAERS Safety Report 8462480-4 (Version None)
Quarter: 2012Q2

REPORT INFORMATION
  Report Type: 
  Country: None (occurrence: None)
  Receive Date: 20120625
  Receipt Date: 20120615
  Transmission Date: 20120825
  Serious: Yes (Other)
  Sender: FDA-Public Use
  Company Number: CA-ELI_LILLY_AND_COMPANY-CA201206005702

PATIENT
  Age: 68 Year
  Sex: Female

DRUGS (9)
  1. FORTEO [Suspect]
     Indication: OSTEOPOROSIS
     Dosage: 20 UG, QD
     Route: 058
     Dates: start: 20111221
  2. POTASSIUM ACETATE [Concomitant]
  3. CELEBREX [Concomitant]
  4. FUROSEMIDE [Concomitant]
  5. CLONAZEPAM [Concomitant]
  6. QUININE SULFATE [Concomitant]
  7. COZAAR [Concomitant]
  8. SYNTHROID [Concomitant]
  9. COUMADIN [Concomitant]

REACTIONS (2)
  - PAIN IN EXTREMITY [None]
  - BLEEDING VARICOSE VEIN [None]
